FAERS Safety Report 25882131 (Version 3)
Quarter: 2025Q4

REPORT INFORMATION
  Report Type: Spontaneous
  Country: EU (occurrence: EU)
  Receive Date: 20251006
  Receipt Date: 20251103
  Transmission Date: 20260117
  Serious: Yes (Life-Threatening, Hospitalization, Disabling, Other)
  Sender: ACCORD
  Company Number: EU-Accord-506813

PATIENT
  Age: 81 Year
  Sex: Male

DRUGS (19)
  1. LEVETIRACETAM [Suspect]
     Active Substance: LEVETIRACETAM
     Indication: Hypoxic-ischaemic encephalopathy
     Route: 048
     Dates: start: 202201, end: 2022
  2. PANTOPRAZOLE [Suspect]
     Active Substance: PANTOPRAZOLE
     Indication: Chronic gastritis
     Route: 048
     Dates: start: 202201, end: 202203
  3. ASPIRIN [Concomitant]
     Active Substance: ASPIRIN
  4. AMLODIPINE [Concomitant]
     Active Substance: AMLODIPINE BESYLATE
  5. ATORVASTATIN [Concomitant]
     Active Substance: ATORVASTATIN
  6. CALCIUM CARBONATE [Concomitant]
     Active Substance: CALCIUM CARBONATE
  7. CANRENONE [Concomitant]
     Active Substance: CANRENONE
     Dates: end: 202203
  8. CHOLECALCIFEROL [Concomitant]
     Active Substance: CHOLECALCIFEROL
     Dosage: 10,000  IU
  9. DOXAZOSIN [Concomitant]
     Active Substance: DOXAZOSIN MESYLATE
  10. DUTASTERIDE [Concomitant]
     Active Substance: DUTASTERIDE
  11. INSULIN GLARGINE [Concomitant]
     Active Substance: INSULIN GLARGINE
     Indication: Diabetes mellitus management
     Dosage: 15 IU AT BED TIME
  12. MAGNESIUM PIDOLATE [Concomitant]
     Active Substance: MAGNESIUM PIDOLATE
  13. METFORMIN [Concomitant]
     Active Substance: METFORMIN HYDROCHLORIDE
     Indication: Diabetes mellitus management
  14. NEBIVOLOL [Concomitant]
     Active Substance: NEBIVOLOL
  15. POTASSIUM CHLORIDE [Concomitant]
     Active Substance: POTASSIUM CHLORIDE
  16. SITAGLIPTIN [Concomitant]
     Active Substance: SITAGLIPTIN
     Indication: Diabetes mellitus management
     Dosage: IN THE MORNING
  17. PANTOPRAZOLE [Suspect]
     Active Substance: PANTOPRAZOLE
     Indication: Chronic gastritis
     Dosage: DOSE INCREASED
     Route: 048
     Dates: start: 202203, end: 202502
  18. CANRENONE [Concomitant]
     Active Substance: CANRENONE
     Dosage: DOSE INCREASED
     Dates: start: 202203
  19. LEVETIRACETAM [Suspect]
     Active Substance: LEVETIRACETAM
     Indication: Epilepsy
     Route: 048
     Dates: start: 202201, end: 2022

REACTIONS (14)
  - Dysphagia [Recovered/Resolved]
  - Electrolyte imbalance [Recovered/Resolved]
  - Gastrointestinal disorder [Recovered/Resolved]
  - Hypomagnesaemia [Recovered/Resolved]
  - Malabsorption [Recovered/Resolved]
  - Hypocalcaemia [Recovered/Resolved]
  - Hypokalaemia [Recovered/Resolved]
  - Confusional state [Recovered/Resolved]
  - Lethargy [Recovered/Resolved]
  - Seizure [Recovered/Resolved]
  - Therapy partial responder [Unknown]
  - Pneumonia [Recovered/Resolved]
  - Hypoxic-ischaemic encephalopathy [Recovered/Resolved]
  - Dehydration [Recovered/Resolved]

NARRATIVE: CASE EVENT DATE: 20220101
